FAERS Safety Report 12615341 (Version 1)
Quarter: 2016Q3

REPORT INFORMATION
  Report Type: Spontaneous
  Country: US (occurrence: US)
  Receive Date: 20160802
  Receipt Date: 20160802
  Transmission Date: 20161109
  Serious: No
  Sender: FDA-Public Use
  Company Number: US-BAYER-2016-141938

PATIENT
  Age: 4 Year

DRUGS (2)
  1. CHILDREN CLARITIN ALLERGY [Suspect]
     Active Substance: LORATADINE
     Indication: SEASONAL ALLERGY
     Dosage: 1 DF, QD
     Route: 048
  2. CHILDREN CLARITIN ALLERGY [Suspect]
     Active Substance: LORATADINE
     Indication: SEASONAL ALLERGY
     Dosage: 3 DF, UNK ( 2 THIS MORING AT 08:00 THEN 1 MORE 4 HOURS PRIOR TO CALL)
     Route: 048
     Dates: start: 20160719

REACTIONS (1)
  - Product use issue [None]

NARRATIVE: CASE EVENT DATE: 20160719
